FAERS Safety Report 7915436-1 (Version None)
Quarter: 2011Q4

REPORT INFORMATION
  Report Type: 
  Country: None (occurrence: None)
  Receive Date: 20111115
  Receipt Date: 20111107
  Transmission Date: 20120403
  Serious: Yes (Other)
  Sender: FDA-Public Use
  Company Number: PHHY2011US099859

PATIENT
  Age: 53 Year
  Sex: Female

DRUGS (6)
  1. MYCOPHENOLATE MOFETIL [Suspect]
     Dosage: 3000 MG/DAY
  2. PIMECROLIMUS [Concomitant]
     Route: 061
  3. HYDROXYCHLOROQUINE SULFATE [Concomitant]
  4. STEROIDS NOS [Concomitant]
     Route: 061
  5. PREDNISONE [Concomitant]
  6. MYCOPHENOLATE MOFETIL [Suspect]
     Indication: CUTANEOUS LUPUS ERYTHEMATOSUS
     Dosage: 500 MG/DAY

REACTIONS (2)
  - LUPUS NEPHRITIS [None]
  - HERPES ZOSTER DISSEMINATED [None]
